FAERS Safety Report 17260620 (Version 2)
Quarter: 2020Q1

REPORT INFORMATION
  Report Type: Spontaneous
  Country: JP (occurrence: JP)
  Receive Date: 20200113
  Receipt Date: 20200311
  Transmission Date: 20200409
  Serious: Yes (Other)
  Sender: FDA-Public Use
  Company Number: JP-BRISTOL-MYERS SQUIBB COMPANY-BMS-2020-001998

PATIENT

DRUGS (1)
  1. OPDIVO [Suspect]
     Active Substance: NIVOLUMAB
     Indication: HEAD AND NECK CANCER
     Dosage: (DOSE UNSPECIFIED)
     Route: 041

REACTIONS (1)
  - Pericardial effusion [Recovered/Resolved]
